FAERS Safety Report 14731873 (Version 3)
Quarter: 2018Q3

REPORT INFORMATION
  Report Type: Spontaneous
  Country: US (occurrence: US)
  Receive Date: 20180408
  Receipt Date: 20180818
  Transmission Date: 20181010
  Serious: No
  Sender: FDA-Public Use
  Company Number: US-JNJFOC-20160825245

PATIENT
  Age: 6 Year
  Sex: Male

DRUGS (7)
  1. RISPERDAL [Suspect]
     Active Substance: RISPERIDONE
     Indication: FRAGILE X SYNDROME
     Route: 048
     Dates: start: 20030417, end: 20050706
  2. RISPERDAL [Suspect]
     Active Substance: RISPERIDONE
     Indication: PRODUCT USED FOR UNKNOWN INDICATION
     Dosage: 1 MG/ML
     Route: 048
  3. PAROXETINE. [Concomitant]
     Active Substance: PAROXETINE
     Route: 065
     Dates: start: 20130708, end: 20131029
  4. PAROXETINE. [Concomitant]
     Active Substance: PAROXETINE
     Route: 065
     Dates: start: 200305, end: 20120319
  5. PAROXETINE. [Concomitant]
     Active Substance: PAROXETINE
     Route: 065
     Dates: start: 20120319, end: 20130708
  6. ABILIFY [Concomitant]
     Active Substance: ARIPIPRAZOLE
     Route: 065
  7. PAROXETINE. [Concomitant]
     Active Substance: PAROXETINE
     Route: 065
     Dates: start: 20131029, end: 20140421

REACTIONS (5)
  - Increased appetite [Unknown]
  - Product use in unapproved indication [Unknown]
  - Off label use [Unknown]
  - Abnormal weight gain [Unknown]
  - Gynaecomastia [Unknown]

NARRATIVE: CASE EVENT DATE: 20030417
